FAERS Safety Report 9958902 (Version 1)
Quarter: 2014Q1

REPORT INFORMATION
  Report Type: Report from Study
  Country: US (occurrence: US)
  Receive Date: 20140305
  Receipt Date: 20140305
  Transmission Date: 20141002
  Serious: No
  Sender: FDA-Public Use
  Company Number: US-ABBVIE-13P-163-1102095-00

PATIENT
  Age: 42 Year
  Sex: Female

DRUGS (8)
  1. HUMIRA [Suspect]
     Indication: CROHN^S DISEASE
     Dates: start: 20121228
  2. DEXILANT [Concomitant]
     Indication: GASTROOESOPHAGEAL REFLUX DISEASE
  3. DOMPERIDONE [Concomitant]
     Indication: IMPAIRED GASTRIC EMPTYING
  4. BENADRYL [Concomitant]
     Indication: HYPERSENSITIVITY
     Dosage: AS NEEDED
  5. KLONOPIN [Concomitant]
     Indication: ANXIETY
     Dosage: AS NEEDED
  6. VITAMINS [Concomitant]
     Indication: PRODUCT USED FOR UNKNOWN INDICATION
  7. GAS-X [Concomitant]
     Indication: PRODUCT USED FOR UNKNOWN INDICATION
  8. STRATTERA [Concomitant]
     Indication: ANXIETY

REACTIONS (2)
  - Fatigue [Recovering/Resolving]
  - Injection site pain [Unknown]
